FAERS Safety Report 9732553 (Version 3)
Quarter: 2014Q1

REPORT INFORMATION
  Report Type: Spontaneous
  Country: US (occurrence: US)
  Receive Date: 20131204
  Receipt Date: 20140220
  Transmission Date: 20141002
  Serious: Yes (Hospitalization)
  Sender: FDA-Public Use
  Company Number: US-PFIZER INC-2013342882

PATIENT
  Age: 56 Year
  Sex: Male

DRUGS (2)
  1. MORPHINE SULFATE [Suspect]
     Indication: PAIN
     Dosage: 30 MG, 2X/DAY
     Route: 048
  2. MORPHINE SULFATE [Suspect]
     Indication: FIBROMYALGIA

REACTIONS (1)
  - Pancreatitis acute [Recovered/Resolved]
